FAERS Safety Report 9506357 (Version 1)
Quarter: 2013Q1

REPORT INFORMATION
  Report Type: Spontaneous
  Country: US (occurrence: None)
  Receive Date: 20130301
  Receipt Date: 20130301
  Transmission Date: 20140127
  Serious: Yes (Other)
  Sender: FDA-Public Use
  Company Number: RB-47462-2012

PATIENT
  Age: 23 Year
  Sex: Female

DRUGS (1)
  1. BUPRENORPHINE [Suspect]
     Indication: DRUG DEPENDENCE
     Dosage: SUBLINGUAL
     Dates: end: 201204

REACTIONS (3)
  - Cholelithiasis [None]
  - Drug withdrawal syndrome [None]
  - Maternal exposure during pregnancy [None]
